FAERS Safety Report 18664893 (Version 1)
Quarter: 2020Q4

REPORT INFORMATION
  Report Type: Report from Study
  Country: DE (occurrence: DE)
  Receive Date: 20201225
  Receipt Date: 20201225
  Transmission Date: 20210114
  Serious: Yes (Hospitalization)
  Sender: FDA-Public Use
  Company Number: DE-SHIRE-DE201912399

PATIENT

DRUGS (5)
  1. TEDUGLUTIDE [Suspect]
     Active Substance: TEDUGLUTIDE
     Indication: SHORT-BOWEL SYNDROME
     Dosage: 2.2 MILLIGRAM (0.44 MG KG AND 7 DOSES PER WEEK)
     Route: 058
     Dates: start: 20171114
  2. TEDUGLUTIDE [Suspect]
     Active Substance: TEDUGLUTIDE
     Indication: SHORT-BOWEL SYNDROME
     Dosage: 2.2 MILLIGRAM (0.44 MG KG AND 7 DOSES PER WEEK)
     Route: 058
     Dates: start: 20171114
  3. FLUCONAZOL [Concomitant]
     Active Substance: FLUCONAZOLE
     Indication: CANDIDA INFECTION
  4. TEDUGLUTIDE [Suspect]
     Active Substance: TEDUGLUTIDE
     Indication: SHORT-BOWEL SYNDROME
     Dosage: 2.2 MILLIGRAM (0.44 MG KG AND 7 DOSES PER WEEK)
     Route: 058
     Dates: start: 20171114
  5. TEDUGLUTIDE [Suspect]
     Active Substance: TEDUGLUTIDE
     Indication: SHORT-BOWEL SYNDROME
     Dosage: 2.2 MILLIGRAM (0.44 MG KG AND 7 DOSES PER WEEK)
     Route: 058
     Dates: start: 20171114

REACTIONS (6)
  - Device malfunction [Recovered/Resolved]
  - Device related infection [Recovered/Resolved]
  - Splenomegaly [Not Recovered/Not Resolved]
  - Cholelithiasis [Not Recovered/Not Resolved]
  - Vascular device infection [Recovered/Resolved]
  - Lymphadenopathy [Recovered/Resolved]

NARRATIVE: CASE EVENT DATE: 20180320
